FAERS Safety Report 21811220 (Version 1)
Quarter: 2023Q1

REPORT INFORMATION
  Report Type: Spontaneous
  Country: US (occurrence: US)
  Receive Date: 20230103
  Receipt Date: 20230103
  Transmission Date: 20230418
  Serious: Yes (Death)
  Sender: FDA-Public Use
  Company Number: US-CTI BIOPHARMA-2022US03277

PATIENT

DRUGS (1)
  1. VONJO [Suspect]
     Active Substance: PACRITINIB

REACTIONS (1)
  - Death [Fatal]
